FAERS Safety Report 8488060-2 (Version None)
Quarter: 2012Q3

REPORT INFORMATION
  Report Type: 
  Country: None (occurrence: None)
  Receive Date: 20120705
  Receipt Date: 20120625
  Transmission Date: 20120928
  Serious: Yes (Hospitalization, Other)
  Sender: FDA-Public Use
  Company Number: US-BRISTOL-MYERS SQUIBB COMPANY-16613333

PATIENT
  Age: 56 Year
  Sex: Male
  Weight: 81 kg

DRUGS (1)
  1. IPILIMUMAB [Suspect]
     Indication: MALIGNANT MELANOMA
     Dosage: LAST DOSE ON 02APR12,NO OF COURSES: 4
     Route: 042
     Dates: start: 20120130

REACTIONS (5)
  - ALANINE AMINOTRANSFERASE INCREASED [None]
  - ILEUS [None]
  - COLITIS [None]
  - ATRIAL FIBRILLATION [None]
  - ASPARTATE AMINOTRANSFERASE INCREASED [None]
